FAERS Safety Report 17840235 (Version 1)
Quarter: 2020Q2

REPORT INFORMATION
  Report Type: Spontaneous
  Country: GB (occurrence: GB)
  Receive Date: 20200529
  Receipt Date: 20200529
  Transmission Date: 20200714
  Serious: Yes (Death, Other)
  Sender: FDA-Public Use
  Company Number: GB-ACCORD-183114

PATIENT
  Age: 9 Year
  Sex: Female
  Weight: 23 kg

DRUGS (7)
  1. VINCRISTINE [Concomitant]
     Active Substance: VINCRISTINE
  2. ATRACURIUM [Concomitant]
     Active Substance: ATRACURIUM
  3. TOPOTECAN [Suspect]
     Active Substance: TOPOTECAN HYDROCHLORIDE
     Indication: METASTASES TO MENINGES
     Dosage: ONLY ONCE
     Route: 037
     Dates: start: 20191017, end: 20191017
  4. IFOSFAMIDE. [Concomitant]
     Active Substance: IFOSFAMIDE
  5. DOXORUBICIN [Concomitant]
     Active Substance: DOXORUBICIN
  6. DEXAMETHASONE. [Concomitant]
     Active Substance: DEXAMETHASONE
  7. FENTANYL. [Concomitant]
     Active Substance: FENTANYL

REACTIONS (4)
  - Ventricular tachycardia [Not Recovered/Not Resolved]
  - Toxicity to various agents [Unknown]
  - Rash [Not Recovered/Not Resolved]
  - Cardiac arrest [Fatal]
